FAERS Safety Report 9506970 (Version 1)
Quarter: 2013Q3

REPORT INFORMATION
  Report Type: Spontaneous
  Country: DE (occurrence: None)
  Receive Date: 20130904
  Receipt Date: 20130904
  Transmission Date: 20140515
  Serious: Yes (Hospitalization)
  Sender: FDA-Public Use
  Company Number: AUR-APL-2013-07218

PATIENT
  Age: 84 Year
  Sex: Female
  Weight: 52 kg

DRUGS (5)
  1. MIRTAZAPINE [Suspect]
     Indication: ANXIETY
     Route: 048
     Dates: start: 20130621
  2. ZOPICLONE (ZOPICLONE) [Concomitant]
  3. AMLODIPINE (AMLODIPINE) [Concomitant]
  4. BELOC-ZOK MITE (METOPROLOL SUCCINATE) [Concomitant]
  5. DIOVAN (VALSARTAN) [Concomitant]

REACTIONS (1)
  - Inappropriate antidiuretic hormone secretion [None]
